FAERS Safety Report 5745855-3 (Version None)
Quarter: 2008Q2

REPORT INFORMATION
  Report Type: 
  Country: None (occurrence: None)
  Receive Date: 20080521
  Receipt Date: 20080515
  Transmission Date: 20081010
  Serious: Yes (Hospitalization)
  Sender: FDA-Public Use
  Company Number: CA-AMGEN-QUU277018

PATIENT
  Sex: Female
  Weight: 75 kg

DRUGS (4)
  1. NEULASTA [Suspect]
     Indication: CHEMOTHERAPY
     Route: 058
     Dates: start: 20080419
  2. FLUOROURACIL [Concomitant]
     Dates: start: 20080418
  3. EPIRUBICIN [Concomitant]
     Dates: start: 20080418
  4. CYCLOPHOSPHAMIDE [Concomitant]
     Dates: start: 20080418

REACTIONS (1)
  - FEBRILE NEUTROPENIA [None]
